FAERS Safety Report 8106429-2 (Version None)
Quarter: 2012Q1

REPORT INFORMATION
  Report Type: 
  Country: None (occurrence: None)
  Receive Date: 20120202
  Receipt Date: 20120123
  Transmission Date: 20120608
  Serious: Yes (Hospitalization)
  Sender: FDA-Public Use
  Company Number: JP-SANOFI-AVENTIS-2011SA079269

PATIENT
  Age: 43 Year
  Sex: Male
  Weight: 55.3 kg

DRUGS (5)
  1. LANTUS [Suspect]
     Indication: DIABETES MELLITUS
     Dosage: DOSE:10 UNIT(S)
     Route: 058
     Dates: start: 20111122, end: 20111123
  2. NOVORAPID [Concomitant]
     Dosage: 2-10
     Route: 058
     Dates: start: 20111119
  3. LANTUS [Suspect]
     Dosage: DOSE:13 UNIT(S)
     Route: 058
     Dates: start: 20111124, end: 20111129
  4. INSULIN DETEMIR [Concomitant]
     Dates: start: 20111130
  5. INSULIN DETEMIR [Concomitant]
     Dosage: DOSE:10 UNIT(S)

REACTIONS (4)
  - ASTHENIA [None]
  - LIVER DISORDER [None]
  - NAUSEA [None]
  - DYSPHORIA [None]
